FAERS Safety Report 4398345-7 (Version None)
Quarter: 2004Q3

REPORT INFORMATION
  Report Type: 
  Country: None (occurrence: None)
  Receive Date: 20040714
  Receipt Date: 20040714
  Transmission Date: 20050211
  Serious: Yes (Hospitalization)
  Sender: FDA-Public Use
  Company Number: None

PATIENT
  Age: 64 Year
  Sex: Male
  Weight: 72 kg

DRUGS (10)
  1. FLUOROURACIL [Suspect]
     Indication: COLON CANCER
     Dates: start: 20040420
  2. FLUOROURACIL [Suspect]
     Indication: COLON CANCER
     Dates: start: 20040427
  3. FLUOROURACIL [Suspect]
     Indication: COLON CANCER
     Dates: start: 20040504
  4. FLUOROURACIL [Suspect]
     Indication: COLON CANCER
     Dates: start: 20040511
  5. FLUOROURACIL [Suspect]
     Indication: COLON CANCER
     Dates: start: 20040518
  6. LEUCOVORIN [Suspect]
     Indication: COLON CANCER
     Dates: start: 20040420
  7. LEUCOVORIN [Suspect]
     Indication: COLON CANCER
     Dates: start: 20040427
  8. LEUCOVORIN [Suspect]
     Indication: COLON CANCER
     Dates: start: 20040504
  9. LEUCOVORIN [Suspect]
     Indication: COLON CANCER
     Dates: start: 20040511
  10. LEUCOVORIN [Suspect]
     Indication: COLON CANCER
     Dates: start: 20040518

REACTIONS (3)
  - BLOOD CREATININE INCREASED [None]
  - DEHYDRATION [None]
  - DIARRHOEA [None]
